FAERS Safety Report 17870139 (Version 1)
Quarter: 2020Q2

REPORT INFORMATION
  Report Type: Spontaneous
  Country: US (occurrence: US)
  Receive Date: 20200608
  Receipt Date: 20200608
  Transmission Date: 20200714
  Serious: No
  Sender: FDA-Public Use
  Company Number: US-SA-2020SA146360

PATIENT

DRUGS (1)
  1. AUBAGIO [Suspect]
     Active Substance: TERIFLUNOMIDE
     Indication: MULTIPLE SCLEROSIS
     Dosage: 14 MG, QD
     Route: 048
     Dates: start: 2016

REACTIONS (6)
  - Hot flush [Unknown]
  - Dyspepsia [Unknown]
  - Night sweats [Unknown]
  - Nausea [Recovered/Resolved]
  - Insomnia [Unknown]
  - Alopecia [Recovered/Resolved]
